FAERS Safety Report 16074680 (Version 1)
Quarter: 2019Q1

REPORT INFORMATION
  Report Type: Spontaneous
  Country: ES (occurrence: ES)
  Receive Date: 20190314
  Receipt Date: 20190314
  Transmission Date: 20190418
  Serious: Yes (Death)
  Sender: FDA-Public Use
  Company Number: ES-BIODELIVERY SCIENCES INTERNATIONAL-2018BDSI0183

PATIENT
  Age: 78 Year
  Sex: Male

DRUGS (7)
  1. FENTANYL CITRATE. [Suspect]
     Active Substance: FENTANYL CITRATE
     Dosage: 1-2 PER DAY (10 MINUTES BEFORE MEALS
     Route: 065
  2. FENTANYL. [Suspect]
     Active Substance: FENTANYL
     Indication: PRODUCT USED FOR UNKNOWN INDICATION
     Route: 062
  3. AMITRIPTYLINE [Suspect]
     Active Substance: AMITRIPTYLINE
     Indication: PRODUCT USED FOR UNKNOWN INDICATION
  4. FENTANYL CITRATE. [Suspect]
     Active Substance: FENTANYL CITRATE
     Indication: BREAKTHROUGH PAIN
     Dosage: 1-2 PER DAY (10 MINUTES BEFORE MEALS)
     Route: 065
  5. FENTANYL. [Suspect]
     Active Substance: FENTANYL
     Route: 062
  6. PARACETAMOL [Suspect]
     Active Substance: ACETAMINOPHEN
     Route: 065
  7. PREGABALIN. [Suspect]
     Active Substance: PREGABALIN
     Indication: PRODUCT USED FOR UNKNOWN INDICATION
     Route: 065

REACTIONS (1)
  - Disease progression [Fatal]
